FAERS Safety Report 14079051 (Version 1)
Quarter: 2017Q4

REPORT INFORMATION
  Report Type: Spontaneous
  Country: DE (occurrence: DE)
  Receive Date: 20171012
  Receipt Date: 20171012
  Transmission Date: 20180321
  Serious: Yes (Disabling, Other)
  Sender: FDA-Public Use
  Company Number: DE-BAYER-2017-193260

PATIENT
  Age: 59 Year
  Sex: Female

DRUGS (2)
  1. FEMOSTON CONTI [Concomitant]
     Active Substance: DYDROGESTERONE\ESTRADIOL
  2. CIPROFLOXACIN. [Suspect]
     Active Substance: CIPROFLOXACIN
     Indication: CYSTITIS
     Dosage: 100 MG, BID
     Route: 048
     Dates: start: 20160810, end: 20160812

REACTIONS (7)
  - Blepharospasm [Recovering/Resolving]
  - Vision blurred [Recovering/Resolving]
  - Eye pain [Recovering/Resolving]
  - Joint swelling [Recovering/Resolving]
  - Tendonitis [Recovering/Resolving]
  - Headache [Recovering/Resolving]
  - Visual impairment [Recovering/Resolving]

NARRATIVE: CASE EVENT DATE: 20160926
